FAERS Safety Report 25402264 (Version 1)
Quarter: 2025Q2

REPORT INFORMATION
  Report Type: Spontaneous
  Country: US (occurrence: US)
  Receive Date: 20250605
  Receipt Date: 20250605
  Transmission Date: 20250717
  Serious: Yes (Other)
  Sender: SPRINGWORKS THERAPEUTIC
  Company Number: US-SPRINGWORKS THERAPEUTICS-SW-002678

PATIENT
  Sex: Female

DRUGS (2)
  1. OGSIVEO [Suspect]
     Active Substance: NIROGACESTAT HYDROBROMIDE
     Indication: Desmoid tumour
  2. OGSIVEO [Suspect]
     Active Substance: NIROGACESTAT HYDROBROMIDE

REACTIONS (7)
  - Basal cell carcinoma [Unknown]
  - Hidradenitis [Unknown]
  - Rash [Unknown]
  - Menopausal symptoms [Unknown]
  - Alopecia [Unknown]
  - Intentional product use issue [Unknown]
  - Product dose omission issue [Unknown]
